FAERS Safety Report 4913793-1 (Version None)
Quarter: 2006Q1

REPORT INFORMATION
  Report Type: 
  Country: None (occurrence: None)
  Receive Date: 20060216
  Receipt Date: 20060207
  Transmission Date: 20060701
  Serious: Yes (Hospitalization)
  Sender: FDA-Public Use
  Company Number: FR-GLAXOSMITHKLINE-B0411322A

PATIENT
  Age: 4 Year
  Sex: Female
  Weight: 13 kg

DRUGS (2)
  1. AUGMENTIN '125' [Suspect]
     Dosage: 250MG THREE TIMES PER DAY
     Route: 048
     Dates: start: 20051226, end: 20051229
  2. AUGMENTIN '125' [Concomitant]
     Route: 042
     Dates: start: 20051229, end: 20051230

REACTIONS (6)
  - ABDOMINAL DISTENSION [None]
  - ASPARTATE AMINOTRANSFERASE ABNORMAL [None]
  - DIARRHOEA [None]
  - GENERAL PHYSICAL HEALTH DETERIORATION [None]
  - HYPERTHERMIA [None]
  - ORAL INTAKE REDUCED [None]
